FAERS Safety Report 4518422-7 (Version None)
Quarter: 2004Q4

REPORT INFORMATION
  Report Type: 
  Country: None (occurrence: None)
  Receive Date: 20041203
  Receipt Date: 20041124
  Transmission Date: 20050328
  Serious: Yes (Death, Hospitalization)
  Sender: FDA-Public Use
  Company Number: PHEH2004US12691

PATIENT
  Age: 43 Year
  Sex: Male

DRUGS (1)
  1. CLOZARIL [Suspect]
     Dosage: UNK,UNK
     Route: 048

REACTIONS (3)
  - METASTASES TO LIVER [None]
  - METASTASES TO LUNG [None]
  - PANCREATIC CARCINOMA METASTATIC [None]
